FAERS Safety Report 6155989-X (Version None)
Quarter: 2009Q2

REPORT INFORMATION
  Report Type: 
  Country: None (occurrence: None)
  Receive Date: 20090410
  Receipt Date: 20090410
  Transmission Date: 20091009
  Serious: Yes (Other)
  Sender: FDA-Public Use
  Company Number: None

PATIENT
  Age: 76 Year
  Sex: Male
  Weight: 77.5651 kg

DRUGS (1)
  1. GEMZAR [Suspect]
     Indication: BILE DUCT CANCER
     Dosage: 1600 MG WEEKLY IV DRIP
     Route: 041
     Dates: start: 20060912, end: 20090402

REACTIONS (2)
  - FLUID INTAKE REDUCED [None]
  - NAUSEA [None]
